FAERS Safety Report 11427183 (Version 2)
Quarter: 2015Q4

REPORT INFORMATION
  Report Type: Spontaneous
  Country: US (occurrence: US)
  Receive Date: 20150827
  Receipt Date: 20151008
  Transmission Date: 20160304
  Serious: No
  Sender: FDA-Public Use
  Company Number: US-009507513-1508USA011265

PATIENT
  Age: 59 Year
  Sex: Female
  Weight: 107.48 kg

DRUGS (2)
  1. THYROID [Concomitant]
     Active Substance: LEVOTHYROXINE\LIOTHYRONINE
  2. BELSOMRA [Suspect]
     Active Substance: SUVOREXANT
     Indication: INSOMNIA
     Dosage: 10 MG, AT NIGHT
     Route: 048
     Dates: start: 20150820, end: 20150823

REACTIONS (5)
  - Abnormal dreams [Recovered/Resolved]
  - Maternal exposure during pregnancy [Unknown]
  - Nightmare [Recovered/Resolved]
  - Anxiety [Recovered/Resolved]
  - Drug ineffective [Recovered/Resolved]

NARRATIVE: CASE EVENT DATE: 20150820
